FAERS Safety Report 23298829 (Version 1)
Quarter: 2023Q4

REPORT INFORMATION
  Report Type: Spontaneous
  Country: CN (occurrence: CN)
  Receive Date: 20231215
  Receipt Date: 20231215
  Transmission Date: 20240109
  Serious: Yes (Other)
  Sender: FDA-Public Use
  Company Number: CN-Merck Healthcare KGaA-2023492991

PATIENT
  Age: 78 Year
  Sex: Male

DRUGS (11)
  1. ERBITUX [Suspect]
     Active Substance: CETUXIMAB
     Indication: Rectal cancer metastatic
     Dosage: 0.1 G, UNKNOWN
     Route: 041
     Dates: start: 20230828, end: 20230828
  2. ERBITUX [Suspect]
     Active Substance: CETUXIMAB
     Dosage: 0.6 G, UNKNOWN
     Route: 041
     Dates: start: 20230828, end: 20230828
  3. FLUOROURACIL [Suspect]
     Active Substance: FLUOROURACIL
     Indication: Rectal cancer metastatic
     Dosage: .6 G, DAILY
     Route: 041
     Dates: start: 20230828, end: 20230828
  4. FLUOROURACIL [Suspect]
     Active Substance: FLUOROURACIL
     Dosage: 3.75 G, DAILY
     Route: 042
     Dates: start: 20230828, end: 20230828
  5. OXALIPLATIN [Suspect]
     Active Substance: OXALIPLATIN
     Indication: Rectal cancer metastatic
     Dosage: 140 MG, DAILY
     Route: 041
     Dates: start: 20230828, end: 20230828
  6. SODIUM CHLORIDE [Concomitant]
     Active Substance: SODIUM CHLORIDE
     Indication: Medication dilution
     Dosage: 500 ML, DAILY
     Route: 041
     Dates: start: 20230828, end: 20230828
  7. SODIUM CHLORIDE [Concomitant]
     Active Substance: SODIUM CHLORIDE
     Dosage: 250 ML, DAILY
     Route: 041
     Dates: start: 20230828, end: 20230828
  8. SODIUM CHLORIDE [Concomitant]
     Active Substance: SODIUM CHLORIDE
     Dosage: 80 ML, DAILY
     Route: 041
     Dates: start: 20230828, end: 20230828
  9. SODIUM CHLORIDE [Concomitant]
     Active Substance: SODIUM CHLORIDE
     Dosage: 100 ML, DAILY
     Route: 041
     Dates: start: 20230828, end: 20230828
  10. DEXTROSE [Concomitant]
     Active Substance: DEXTROSE\DEXTROSE MONOHYDRATE
     Indication: Medication dilution
     Dosage: 250 ML, DAILY
     Route: 041
     Dates: start: 20230828, end: 20230828
  11. DEXTROSE [Concomitant]
     Active Substance: DEXTROSE\DEXTROSE MONOHYDRATE
     Dosage: 500 ML, DAILY
     Route: 041
     Dates: start: 20230828, end: 20230828

REACTIONS (1)
  - Myelosuppression [Recovering/Resolving]

NARRATIVE: CASE EVENT DATE: 20230913
